FAERS Safety Report 7034061-0 (Version None)
Quarter: 2010Q4

REPORT INFORMATION
  Report Type: 
  Country: None (occurrence: None)
  Receive Date: 20101006
  Receipt Date: 20100927
  Transmission Date: 20110411
  Serious: Yes (Other)
  Sender: FDA-Public Use
  Company Number: 712354

PATIENT
  Age: 20 Year
  Sex: Male

DRUGS (4)
  1. ETOMIDATE [Suspect]
     Indication: RESUSCITATION
  2. (DEXAMETHASONE) [Suspect]
     Indication: RESUSCITATION
  3. MANNITOL [Concomitant]
  4. (BENZODIAZEPINE DERIVATIVES) [Concomitant]

REACTIONS (8)
  - ABNORMAL BEHAVIOUR [None]
  - ADDISON'S DISEASE [None]
  - ADRENAL ATROPHY [None]
  - ALTERED STATE OF CONSCIOUSNESS [None]
  - BLOOD SODIUM INCREASED [None]
  - BRAIN OEDEMA [None]
  - PRIMARY ADRENAL INSUFFICIENCY [None]
  - VOMITING [None]
